FAERS Safety Report 10062578 (Version 1)
Quarter: 2014Q2

REPORT INFORMATION
  Report Type: Report from Study
  Country: FR (occurrence: FR)
  Receive Date: 20140407
  Receipt Date: 20140407
  Transmission Date: 20141212
  Serious: Yes (Death, Other)
  Sender: FDA-Public Use
  Company Number: FR-SA-2014SA042893

PATIENT
  Sex: 0

DRUGS (5)
  1. ANTI-THYMOCYTE GLOBULIN (RABBIT) [Suspect]
     Indication: BONE MARROW CONDITIONING REGIMEN
     Route: 065
  2. FLUDARABINE [Suspect]
     Indication: BONE MARROW CONDITIONING REGIMEN
     Dosage: DAY-6 TO DAY-2
     Route: 065
  3. BUSULFAN [Suspect]
     Indication: BONE MARROW CONDITIONING REGIMEN
     Route: 065
  4. CICLOSPORIN [Concomitant]
     Indication: PROPHYLAXIS AGAINST GRAFT VERSUS HOST DISEASE
     Dosage: ON DAY 4 UNTIL DAY 100
     Route: 048
  5. MYCOPHENOLATE MOFETIL [Concomitant]
     Indication: PROPHYLAXIS AGAINST GRAFT VERSUS HOST DISEASE
     Dosage: DAY +1 TO DAY +30
     Route: 048

REACTIONS (7)
  - Venoocclusive disease [Fatal]
  - Multi-organ failure [Fatal]
  - Hepatotoxicity [Unknown]
  - Cytomegalovirus infection [Unknown]
  - Acute respiratory distress syndrome [Fatal]
  - Sepsis [Fatal]
  - Neutropenia [Unknown]
